FAERS Safety Report 25295318 (Version 3)
Quarter: 2025Q2

REPORT INFORMATION
  Report Type: Spontaneous
  Country: US (occurrence: US)
  Receive Date: 20250511
  Receipt Date: 20250627
  Transmission Date: 20250716
  Serious: Yes (Death, Other)
  Sender: SANOFI AVENTIS
  Company Number: US-SA-2025SA129420

PATIENT
  Age: 75 Year
  Sex: Male

DRUGS (13)
  1. REZUROCK [Suspect]
     Active Substance: BELUMOSUDIL
     Indication: Graft versus host disease
     Dosage: 200 MG, QD
     Route: 048
     Dates: start: 202403
  2. ASPIRIN [Concomitant]
     Active Substance: ASPIRIN
  3. FAMOTIDINE [Concomitant]
     Active Substance: FAMOTIDINE
  4. FARXIGA [Concomitant]
     Active Substance: DAPAGLIFLOZIN PROPANEDIOL
  5. FUROSEMIDE [Concomitant]
     Active Substance: FUROSEMIDE
     Dosage: UNK UNK, BIW
  6. FUROSEMIDE [Concomitant]
     Active Substance: FUROSEMIDE
     Dosage: UNK, TIW
  7. JAKAFI [Concomitant]
     Active Substance: RUXOLITINIB
  8. POSACONAZOLE [Concomitant]
     Active Substance: POSACONAZOLE
  9. PREDNISONE [Concomitant]
     Active Substance: PREDNISONE
  10. VALACYCLOVIR [Concomitant]
     Active Substance: VALACYCLOVIR HYDROCHLORIDE
  11. VANCOMYCIN [Concomitant]
     Active Substance: VANCOMYCIN
  12. VITAMIN D3 [Concomitant]
     Active Substance: CHOLECALCIFEROL
  13. POTASSIUM CHLORIDE [Concomitant]
     Active Substance: POTASSIUM CHLORIDE

REACTIONS (2)
  - Death [Fatal]
  - Oedema peripheral [Not Recovered/Not Resolved]
